FAERS Safety Report 8901216 (Version 2)
Quarter: 2014Q2

REPORT INFORMATION
  Report Type: Report from Study
  Country: JP (occurrence: JP)
  Receive Date: 20121109
  Receipt Date: 20140423
  Transmission Date: 20141212
  Serious: Yes (Other)
  Sender: FDA-Public Use
  Company Number: JP-VERTEX PHARMACEUTICAL INC.-2012-020274

PATIENT
  Age: 48 Year
  Sex: Female

DRUGS (7)
  1. VX-950 (TELAPREVIR) [Suspect]
     Indication: CHRONIC HEPATITIS C
     Dosage: 1500 MG, QD
     Route: 048
     Dates: start: 20120509, end: 20120731
  2. PEGINTRON [Suspect]
     Indication: CHRONIC HEPATITIS C
     Dosage: 1.5 ?G/KG, QW
     Route: 058
     Dates: start: 20120509, end: 20120704
  3. PEGINTRON [Suspect]
     Dosage: 0.75 ?G/KG, QW
     Route: 058
     Dates: start: 20120711, end: 20120711
  4. PEGINTRON [Suspect]
     Dosage: 1.5 ?G/KG, QW
     Route: 058
     Dates: start: 20120718, end: 20121016
  5. RIBAVIRIN [Concomitant]
     Dosage: 600 MG, QD
     Route: 048
     Dates: start: 20120509, end: 20121016
  6. LOXONIN [Concomitant]
     Dosage: 1 DF, PRN
     Route: 048
     Dates: start: 20120509, end: 20121010
  7. RINDERON-VG [Concomitant]
     Dosage: UNK, PRN
     Route: 061
     Dates: start: 20120516

REACTIONS (1)
  - Neutrophil count decreased [Recovered/Resolved]
